FAERS Safety Report 9013924 (Version 3)
Quarter: 2013Q1

REPORT INFORMATION
  Report Type: Report from Study
  Country: US (occurrence: US)
  Receive Date: 20130115
  Receipt Date: 20130304
  Transmission Date: 20140127
  Serious: Yes (Hospitalization)
  Sender: FDA-Public Use
  Company Number: US-BRISTOL-MYERS SQUIBB COMPANY-17278243

PATIENT
  Age: 26 Year
  Sex: Male

DRUGS (8)
  1. ARIPIPRAZOLE IM DEPOT [Suspect]
     Indication: SCHIZOPHRENIA
     Dosage: THERAPY ON 28MAR12
     Route: 030
     Dates: start: 20120314
  2. ATIVAN [Concomitant]
     Dates: start: 201107
  3. ARTANE [Concomitant]
     Dates: start: 201108
  4. AMANTADINE [Concomitant]
     Dates: start: 201108
  5. AMBIEN [Concomitant]
     Dates: start: 2010
  6. TRAZODONE HCL [Concomitant]
     Dates: start: 2010
  7. TOPROL [Concomitant]
     Dates: start: 201111
  8. ZYPREXA [Concomitant]
     Dates: start: 2010

REACTIONS (1)
  - Psychotic disorder [Recovered/Resolved with Sequelae]
